FAERS Safety Report 5011646-4 (Version None)
Quarter: 2006Q2

REPORT INFORMATION
  Report Type: 
  Country: None (occurrence: None)
  Receive Date: 20060526
  Receipt Date: 20060516
  Transmission Date: 20061013
  Serious: Yes (Hospitalization)
  Sender: FDA-Public Use
  Company Number: 2006PK01115

PATIENT
  Age: 22907 Day
  Sex: Female

DRUGS (2)
  1. GEFITINIB [Suspect]
     Indication: BREAST CANCER FEMALE
     Route: 048
     Dates: start: 20060223, end: 20060308
  2. NOLVADEX [Suspect]
     Indication: BREAST CANCER FEMALE
     Route: 048
     Dates: start: 20060223, end: 20060308

REACTIONS (3)
  - GASTROINTESTINAL HAEMORRHAGE [None]
  - RASH [None]
  - RENAL FAILURE [None]
